FAERS Safety Report 9841715 (Version 3)
Quarter: 2014Q2

REPORT INFORMATION
  Report Type: Spontaneous
  Country: US (occurrence: US)
  Receive Date: 20140124
  Receipt Date: 20140507
  Transmission Date: 20141212
  Serious: No
  Sender: FDA-Public Use
  Company Number: US-GILEAD-2014-0092765

PATIENT
  Sex: Male

DRUGS (10)
  1. LETAIRIS [Suspect]
     Indication: PULMONARY HYPERTENSION
     Dosage: 10 MG, QD
     Route: 065
     Dates: start: 20131029, end: 20140211
  2. LETAIRIS [Suspect]
     Indication: INTERSTITIAL LUNG DISEASE
  3. LETAIRIS [Suspect]
     Indication: CHRONIC OBSTRUCTIVE PULMONARY DISEASE
  4. ADVAIR [Concomitant]
  5. SPIRIVA [Concomitant]
  6. WARFARIN [Concomitant]
  7. SIMVASTATIN [Concomitant]
  8. LOSARTAN [Concomitant]
  9. DILTIAZEM [Concomitant]
  10. MUCINEX [Concomitant]

REACTIONS (1)
  - Bone pain [Not Recovered/Not Resolved]
